FAERS Safety Report 25199349 (Version 1)
Quarter: 2025Q2

REPORT INFORMATION
  Report Type: Spontaneous
  Country: US (occurrence: US)
  Receive Date: 20250415
  Receipt Date: 20250415
  Transmission Date: 20250716
  Serious: No
  Sender: LUPIN
  Company Number: US-LUPIN PHARMACEUTICALS INC.-2025-03100

PATIENT

DRUGS (2)
  1. CLOBETASOL PROPIONATE [Suspect]
     Active Substance: CLOBETASOL PROPIONATE
     Indication: Psoriasis
  2. VASELINE PURE [Suspect]
     Active Substance: PETROLATUM
     Indication: Psoriasis
     Route: 065

REACTIONS (4)
  - Blister [Unknown]
  - Skin exfoliation [Unknown]
  - Incorrect route of product administration [Unknown]
  - Product odour abnormal [Unknown]
